FAERS Safety Report 16091692 (Version 1)
Quarter: 2019Q1

REPORT INFORMATION
  Report Type: Report from Study
  Country: GB (occurrence: GB)
  Receive Date: 20190319
  Receipt Date: 20190319
  Transmission Date: 20190418
  Serious: Yes (Other)
  Sender: FDA-Public Use
  Company Number: GB-JNJFOC-20190308292

PATIENT
  Age: 87 Year
  Sex: Female

DRUGS (2)
  1. FLAMAZINE [Suspect]
     Active Substance: SILVER SULFADIAZINE
     Indication: SKIN DISORDER
     Route: 065
  2. STELARA [Suspect]
     Active Substance: USTEKINUMAB
     Indication: PSORIASIS
     Route: 058
     Dates: start: 20150526

REACTIONS (3)
  - Wound infection [Recovered/Resolved]
  - Product dose omission [Unknown]
  - Psoriasis [Unknown]

NARRATIVE: CASE EVENT DATE: 20190305
